FAERS Safety Report 19713502 (Version 1)
Quarter: 2021Q3

REPORT INFORMATION
  Report Type: Spontaneous
  Country: US (occurrence: US)
  Receive Date: 20210817
  Receipt Date: 20210817
  Transmission Date: 20211014
  Serious: No
  Sender: FDA-Public Use
  Company Number: None

PATIENT
  Age: 73 Year
  Sex: Male
  Weight: 139 kg

DRUGS (1)
  1. DUPILUMAB (DUPILUMAB 150MG/ML INJ,SYR,2ML) [Suspect]
     Active Substance: DUPILUMAB
     Route: 058
     Dates: start: 20190201, end: 20190816

REACTIONS (1)
  - Conjunctivitis [None]

NARRATIVE: CASE EVENT DATE: 20210426
